FAERS Safety Report 23283290 (Version 1)
Quarter: 2023Q4

REPORT INFORMATION
  Report Type: Spontaneous
  Country: CA (occurrence: CA)
  Receive Date: 20231211
  Receipt Date: 20231211
  Transmission Date: 20240110
  Serious: Yes (Other)
  Sender: FDA-Public Use
  Company Number: CA-FreseniusKabi-FK202320023

PATIENT
  Age: 67 Year
  Sex: Female

DRUGS (6)
  1. DIPHENHYDRAMINE HYDROCHLORIDE [Suspect]
     Active Substance: DIPHENHYDRAMINE HYDROCHLORIDE
     Indication: Product used for unknown indication
     Route: 065
  2. METHYLPREDNISOLONE SODIUM SUCCINATE [Suspect]
     Active Substance: METHYLPREDNISOLONE SODIUM SUCCINATE
     Indication: Product used for unknown indication
     Dosage: ROA - UNKNOWN
  3. SOLIRIS [Suspect]
     Active Substance: ECULIZUMAB
     Indication: Myasthenia gravis
     Dosage: FOA - SOLUTION INTRAVENOUS?ROA - INTRAVENOUS (NOT OTHERWISE SPECIFIED)
  4. SOLIRIS [Suspect]
     Active Substance: ECULIZUMAB
     Dosage: FOA - CONCENTRATE FOR SOLUTION FOR INFUSION?ROA - INTRAVENOUS (NOT OTHERWISE SPECIFIED)
  5. COUMADIN [Concomitant]
     Active Substance: WARFARIN SODIUM
     Indication: Product used for unknown indication
     Dosage: FOA - TABLETS?ROA - INTRAVENOUS (NOT OTHERWISE SPECIFIED)
  6. COUMADIN [Concomitant]
     Active Substance: WARFARIN SODIUM
     Dosage: FOA - TABLETS?ROA - UNKNOWN

REACTIONS (2)
  - Diabetes mellitus inadequate control [Not Recovered/Not Resolved]
  - Therapeutic response decreased [Not Recovered/Not Resolved]
